FAERS Safety Report 6914541-6 (Version None)
Quarter: 2010Q3

REPORT INFORMATION
  Report Type: 
  Country: None (occurrence: None)
  Receive Date: 20100809
  Receipt Date: 20100803
  Transmission Date: 20110219
  Serious: Yes (Other)
  Sender: FDA-Public Use
  Company Number: JP-ELI_LILLY_AND_COMPANY-JP201008000885

PATIENT
  Sex: Female

DRUGS (2)
  1. HUMALOG [Suspect]
     Route: 058
  2. LANTUS [Concomitant]
     Route: 058

REACTIONS (1)
  - BLOOD GLUCOSE INCREASED [None]
